FAERS Safety Report 6488733-7 (Version None)
Quarter: 2009Q4

REPORT INFORMATION
  Report Type: 
  Country: None (occurrence: None)
  Receive Date: 20091210
  Receipt Date: 20090909
  Transmission Date: 20100525
  Serious: No
  Sender: FDA-Public Use
  Company Number: US-AMGEN-KDL363830

PATIENT
  Sex: Female

DRUGS (2)
  1. ENBREL [Suspect]
     Indication: RHEUMATOID ARTHRITIS
     Route: 058
     Dates: start: 20090805
  2. METHOTREXATE [Concomitant]

REACTIONS (3)
  - TOOTH FRACTURE [None]
  - TOOTH INFECTION [None]
  - TOOTHACHE [None]
